FAERS Safety Report 25310979 (Version 1)
Quarter: 2025Q2

REPORT INFORMATION
  Report Type: Spontaneous
  Country: IN (occurrence: None)
  Receive Date: 20250514
  Receipt Date: 20250514
  Transmission Date: 20250717
  Serious: Yes (Hospitalization)
  Sender: ENCUBE ETHICALS
  Company Number: IN-Encube-001791

PATIENT
  Age: 6 Decade
  Sex: Male

DRUGS (1)
  1. METRONIDAZOLE [Suspect]
     Active Substance: METRONIDAZOLE
     Indication: Hepatic amoebiasis
     Dosage: CUMULATIVE DOSE OF NEARLY 140 G

REACTIONS (5)
  - Toxic encephalopathy [Recovering/Resolving]
  - Polyneuropathy [Recovering/Resolving]
  - Skin hyperpigmentation [Recovering/Resolving]
  - Off label use [Unknown]
  - Toxicity to various agents [Recovering/Resolving]
